FAERS Safety Report 5416512-8 (Version None)
Quarter: 2007Q3

REPORT INFORMATION
  Report Type: 
  Country: None (occurrence: None)
  Receive Date: 20070816
  Receipt Date: 20070807
  Transmission Date: 20080115
  Serious: Yes (Other)
  Sender: FDA-Public Use
  Company Number: HQWYE455008AUG07

PATIENT
  Sex: Female
  Weight: 77.18 kg

DRUGS (12)
  1. RAPAMUNE [Suspect]
     Indication: LIVER TRANSPLANT
     Route: 048
     Dates: start: 20040101, end: 20070731
  2. LITHIUM CARBONATE [Concomitant]
     Dosage: 60 MG HS, 300 MG AM
  3. TEGRETOL [Concomitant]
  4. COMPAZINE [Concomitant]
     Indication: NAUSEA
     Dosage: UNSPECIFIED, PRN
  5. LORAZEPAM [Concomitant]
     Dosage: 1 MG PRN
  6. PHENERGAN HCL [Concomitant]
     Indication: NAUSEA
     Dosage: UNSPECIFIED, PRN
  7. ZYPREXA [Concomitant]
     Indication: MANIA
     Dosage: 5 MG PRN
  8. ACTIGALL [Concomitant]
     Route: 048
  9. CELLCEPT [Concomitant]
     Indication: LIVER TRANSPLANT
  10. OXYCODONE HCL [Concomitant]
     Indication: PAIN
     Dosage: 5 MG PRN
  11. SEROQUEL [Concomitant]
     Indication: MANIA
     Dosage: 400 MG HS, 100 MG AM
  12. PHENERGAN HCL [Concomitant]
     Dosage: UNSPECIFIED, PRN

REACTIONS (5)
  - HAIR TEXTURE ABNORMAL [None]
  - LOSS OF CONSCIOUSNESS [None]
  - MUSCULAR WEAKNESS [None]
  - TRANSIENT ISCHAEMIC ATTACK [None]
  - VISUAL DISTURBANCE [None]
